FAERS Safety Report 17612562 (Version 2)
Quarter: 2020Q2

REPORT INFORMATION
  Report Type: Report from Study
  Country: FR (occurrence: FR)
  Receive Date: 20200401
  Receipt Date: 20200413
  Transmission Date: 20200713
  Serious: Yes (Hospitalization)
  Sender: FDA-Public Use
  Company Number: FR-GLAXOSMITHKLINE-FR2020GSK051745

PATIENT
  Age: 63 Year
  Sex: Male

DRUGS (10)
  1. NIRAPARIB [Suspect]
     Active Substance: NIRAPARIB
     Indication: TRANSITIONAL CELL CARCINOMA
     Dosage: 200 MG, QD
     Route: 048
     Dates: start: 20200128, end: 20200205
  2. OXYCODONE [Concomitant]
     Active Substance: OXYCODONE
     Dosage: 10 MG, BID
     Route: 048
  3. LYRICA [Concomitant]
     Active Substance: PREGABALIN
     Dosage: 150 MG, BID
     Route: 048
  4. VERSATIS [Concomitant]
     Active Substance: LIDOCAINE
     Indication: ONYCHOLYSIS
     Dosage: UNK, QD
     Route: 062
  5. KARDEGIC [Concomitant]
     Active Substance: ASPIRIN DL-LYSINE
     Indication: OEDEMA
     Dosage: 75 MG, QD
     Route: 048
  6. PRAVASTATINE [Concomitant]
     Active Substance: PRAVASTATIN
     Indication: OEDEMA
     Dosage: 40 MG, QD
     Route: 048
  7. ATEZOLIZUMAB. [Suspect]
     Active Substance: ATEZOLIZUMAB
     Indication: TRANSITIONAL CELL CARCINOMA
     Dosage: 1200 MG (EVERY 3 WEEKS)
     Route: 042
     Dates: start: 20200128, end: 20200128
  8. UVEDOSE [Concomitant]
     Active Substance: CHOLECALCIFEROL
     Dosage: UNK
  9. ATEZOLIZUMAB. [Suspect]
     Active Substance: ATEZOLIZUMAB
     Dosage: 1200 MG (EVERY 3 WEEKS)
     Route: 042
     Dates: start: 20200205, end: 20200205
  10. MACROGOL [Concomitant]
     Active Substance: POLYETHYLENE GLYCOLS
     Indication: CONSTIPATION
     Dosage: UNK, PRN
     Route: 048

REACTIONS (1)
  - Stent placement [Recovered/Resolved]

NARRATIVE: CASE EVENT DATE: 20200206
